FAERS Safety Report 10268560 (Version 1)
Quarter: 2014Q2

REPORT INFORMATION
  Report Type: Spontaneous
  Country: US (occurrence: US)
  Receive Date: 20140630
  Receipt Date: 20140630
  Transmission Date: 20141212
  Serious: Yes (Other)
  Sender: FDA-Public Use
  Company Number: US-PFIZER INC-2014175848

PATIENT
  Sex: Female

DRUGS (4)
  1. PRISTIQ [Suspect]
     Dosage: 150 MG, UNK
  2. PRISTIQ [Suspect]
     Dosage: 100 MG, UNK
  3. PRISTIQ [Suspect]
     Dosage: 150 MG, UNK
  4. LEXAPRO [Concomitant]
     Dosage: UNK

REACTIONS (2)
  - Drug dependence [Unknown]
  - Depression [Unknown]
